FAERS Safety Report 5577400-X (Version None)
Quarter: 2007Q4

REPORT INFORMATION
  Report Type: 
  Country: None (occurrence: None)
  Receive Date: 20071228
  Receipt Date: 20071221
  Transmission Date: 20080405
  Serious: Yes (Other)
  Sender: FDA-Public Use
  Company Number: US-PFIZER INC-2007107523

PATIENT
  Sex: Male
  Weight: 78 kg

DRUGS (3)
  1. SOLU-CORTEF [Suspect]
     Indication: BACK PAIN
     Route: 051
  2. LUPRON [Concomitant]
  3. CASODEX [Concomitant]

REACTIONS (1)
  - PROSTATIC SPECIFIC ANTIGEN INCREASED [None]
